FAERS Safety Report 17938999 (Version 1)
Quarter: 2020Q2

REPORT INFORMATION
  Report Type: Other
  Country: HU (occurrence: HU)
  Receive Date: 20200625
  Receipt Date: 20200625
  Transmission Date: 20200714
  Serious: Yes (Other)
  Sender: FDA-Public Use
  Company Number: HU-DEXPHARM-20200506

PATIENT
  Age: 53 Year
  Sex: Male

DRUGS (7)
  1. BISOPROLOL [Suspect]
     Active Substance: BISOPROLOL
  2. VENLAFAXINE [Suspect]
     Active Substance: VENLAFAXINE HYDROCHLORIDE
  3. MIRTAZAPINE. [Suspect]
     Active Substance: MIRTAZAPINE
  4. AGOMELATINE [Suspect]
     Active Substance: AGOMELATINE
  5. ESOMEPRAZOLE. [Concomitant]
     Active Substance: ESOMEPRAZOLE MAGNESIUM
  6. CLONAZEPAM. [Suspect]
     Active Substance: CLONAZEPAM
  7. PREGABALIN. [Suspect]
     Active Substance: PREGABALIN

REACTIONS (1)
  - Blood pressure increased [Unknown]
